FAERS Safety Report 5564149-2 (Version None)
Quarter: 2007Q4

REPORT INFORMATION
  Report Type: 
  Country: None (occurrence: None)
  Receive Date: 20071217
  Receipt Date: 20071210
  Transmission Date: 20080405
  Serious: Yes (Other)
  Sender: FDA-Public Use
  Company Number: US-PFIZER INC-2007104222

PATIENT
  Sex: Female

DRUGS (1)
  1. ZYRTEC [Suspect]

REACTIONS (2)
  - DRUG ERUPTION [None]
  - EPIDERMAL NECROSIS [None]
